FAERS Safety Report 7956067-7 (Version None)
Quarter: 2011Q4

REPORT INFORMATION
  Report Type: 
  Country: None (occurrence: None)
  Receive Date: 20111205
  Receipt Date: 20111129
  Transmission Date: 20120403
  Serious: No
  Sender: FDA-Public Use
  Company Number: US-PFIZER INC-2011291636

PATIENT
  Sex: Female
  Weight: 58.9 kg

DRUGS (3)
  1. CALCIUM [Concomitant]
     Dosage: UNK
  2. PREMPRO [Suspect]
     Indication: OSTEOPOROSIS PROPHYLAXIS
     Dosage: 0.625/2.5 MG, 1X/DAY
     Route: 048
  3. PREMPRO [Suspect]
     Indication: HORMONE REPLACEMENT THERAPY
     Dosage: 0.45/1.5 MG, 1X/DAY
     Route: 048

REACTIONS (3)
  - BREAST PAIN [None]
  - BREAST DISCOMFORT [None]
  - NIPPLE PAIN [None]
